FAERS Safety Report 17538191 (Version 1)
Quarter: 2020Q1

REPORT INFORMATION
  Report Type: Spontaneous
  Country: ES (occurrence: ES)
  Receive Date: 20200313
  Receipt Date: 20200313
  Transmission Date: 20200409
  Serious: Yes (Death)
  Sender: FDA-Public Use
  Company Number: ES-PFIZER INC-2020107832

PATIENT
  Age: 91 Year
  Sex: Female

DRUGS (7)
  1. LYRICA [Suspect]
     Active Substance: PREGABALIN
     Indication: SCIATICA
     Dosage: 75 MG, 3X/DAY (EVERY 8 HOURS)
     Route: 048
     Dates: start: 20200206, end: 20200213
  2. CALCIUM CARBONATE;CHOLECALCIFEROL [Concomitant]
     Dosage: 1 DF, DAILY
     Route: 048
     Dates: end: 20200219
  3. FUROSEMIDA CINFA [Concomitant]
     Active Substance: FUROSEMIDE
     Dosage: 40 MG, 1X/DAY
     Route: 048
     Dates: end: 20200219
  4. PARACETAMOL [Concomitant]
     Active Substance: ACETAMINOPHEN
     Dosage: 1 G, 3X/DAY (EVERY 8 HOURS)
     Route: 048
     Dates: end: 20200219
  5. EMCONCOR COR [Concomitant]
     Active Substance: BISOPROLOL
     Dosage: 1.25 MG, DAILY
     Route: 048
     Dates: end: 20200219
  6. NOLOTIL [METAMIZOLE MAGNESIUM] [Concomitant]
     Active Substance: METAMIZOLE MAGNESIUM
     Dosage: 575 MG, 3X/DAY (EVERY 8 HOURS)
     Route: 048
     Dates: end: 20200219
  7. CALCIFEDIOL [Concomitant]
     Active Substance: CALCIFEDIOL
     Dosage: 266 UG, CYCLIC (EVERY 15 DAYS)
     Route: 048
     Dates: end: 20200219

REACTIONS (4)
  - Somnolence [Fatal]
  - Gait disturbance [Fatal]
  - Tremor [Fatal]
  - Hepatic encephalopathy [Fatal]

NARRATIVE: CASE EVENT DATE: 20200215
